FAERS Safety Report 7789270-X (Version None)
Quarter: 2011Q3

REPORT INFORMATION
  Report Type: 
  Country: None (occurrence: None)
  Receive Date: 20110930
  Receipt Date: 20110926
  Transmission Date: 20111222
  Serious: Yes (Hospitalization)
  Sender: FDA-Public Use
  Company Number: FR-GLAXOSMITHKLINE-B0648684A

PATIENT
  Sex: Male

DRUGS (1)
  1. ALLI [Suspect]
     Indication: WEIGHT DECREASED
     Dosage: 2CAP PER DAY
     Route: 065
     Dates: start: 20100120, end: 20100125

REACTIONS (5)
  - AGGRESSION [None]
  - ABNORMAL BEHAVIOUR [None]
  - PARTIAL SEIZURES [None]
  - AGITATION [None]
  - EPILEPSY [None]
